FAERS Safety Report 10497783 (Version 1)
Quarter: 2014Q4

REPORT INFORMATION
  Report Type: Spontaneous
  Country: US (occurrence: None)
  Receive Date: 20141002
  Receipt Date: 20141002
  Transmission Date: 20150528
  Serious: Yes (Hospitalization)
  Sender: FDA-Public Use
  Company Number: SP08334

PATIENT
  Age: 51 Year
  Sex: Male

DRUGS (1)
  1. APRISO [Suspect]
     Active Substance: MESALAMINE
     Indication: CROHN^S DISEASE

REACTIONS (4)
  - Chills [None]
  - Dyspnoea [None]
  - Rash [None]
  - Blood pressure increased [None]

NARRATIVE: CASE EVENT DATE: 20140821
